FAERS Safety Report 7908858-6 (Version None)
Quarter: 2011Q4

REPORT INFORMATION
  Report Type: 
  Country: None (occurrence: None)
  Receive Date: 20111111
  Receipt Date: 20111102
  Transmission Date: 20120403
  Serious: Yes (Hospitalization)
  Sender: FDA-Public Use
  Company Number: US-BAYER-2011-045458

PATIENT
  Age: 38 Year
  Sex: Female
  Weight: 90.249 kg

DRUGS (5)
  1. LEVOXYL [Concomitant]
     Indication: HYPERTHYROIDISM
     Dosage: DAILY
     Route: 048
     Dates: start: 19980101
  2. ACTOS [Concomitant]
     Indication: INSULIN RESISTANCE
     Dosage: DAILY
     Route: 048
     Dates: start: 20050501, end: 20060201
  3. YASMIN [Suspect]
     Indication: OVARIAN CYST
     Dosage: UNK
     Dates: start: 20050801, end: 20060201
  4. YASMIN [Suspect]
     Indication: MENSTRUATION IRREGULAR
  5. TRAMADOL HCL [Concomitant]
     Indication: PAIN
     Dosage: UNK
     Route: 048
     Dates: start: 20051001, end: 20061001

REACTIONS (6)
  - PAIN IN EXTREMITY [None]
  - ANXIETY [None]
  - INJURY [None]
  - EMOTIONAL DISTRESS [None]
  - DEEP VEIN THROMBOSIS [None]
  - PAIN [None]
